FAERS Safety Report 12411525 (Version 2)
Quarter: 2016Q2

REPORT INFORMATION
  Report Type: Spontaneous
  Country: CA (occurrence: CA)
  Receive Date: 20160527
  Receipt Date: 20160630
  Transmission Date: 20160815
  Serious: Yes (Other)
  Sender: FDA-Public Use
  Company Number: CA-BEH-2016063077

PATIENT
  Age: 68 Year
  Sex: Female

DRUGS (5)
  1. ALBUREX [Suspect]
     Active Substance: ALBUMIN HUMAN
     Dosage: 500 ML, TOT
     Route: 065
     Dates: start: 20160427
  2. ALBUREX [Suspect]
     Active Substance: ALBUMIN HUMAN
     Dosage: UNK UNK, QMT
     Route: 065
  3. ALBUREX [Suspect]
     Active Substance: ALBUMIN HUMAN
     Indication: MYASTHENIA GRAVIS
     Dosage: 500 ML, TOT
     Route: 065
     Dates: start: 20160427
  4. ALBUREX [Suspect]
     Active Substance: ALBUMIN HUMAN
     Indication: PLASMAPHERESIS
     Dosage: 500 ML, TOT
     Route: 065
     Dates: start: 20160427
  5. ALBUREX [Suspect]
     Active Substance: ALBUMIN HUMAN
     Dosage: 400 ML, TOT
     Route: 065
     Dates: start: 20160427, end: 20160427

REACTIONS (1)
  - Hypotensive transfusion reaction [Recovered/Resolved]

NARRATIVE: CASE EVENT DATE: 20160427
